FAERS Safety Report 6045590-0 (Version None)
Quarter: 2009Q1

REPORT INFORMATION
  Report Type: 
  Country: None (occurrence: None)
  Receive Date: 20090121
  Receipt Date: 20090116
  Transmission Date: 20090719
  Serious: Yes (Hospitalization)
  Sender: FDA-Public Use
  Company Number: DE-WYE-G02960709

PATIENT
  Age: 70 Year
  Sex: Female

DRUGS (7)
  1. IBUPROFEN [Suspect]
     Indication: PAIN IN EXTREMITY
     Dosage: WHEN NEEDED 2 TABL. DAILY (TWICE A WEEK)
     Route: 048
     Dates: start: 20080401, end: 20081010
  2. TORSEMIDE [Concomitant]
     Indication: OEDEMA PERIPHERAL
     Dates: start: 20080401
  3. DIOVAN HCT [Concomitant]
     Indication: HYPERTENSION
     Dosage: 1 TABLET PER DAY
     Route: 048
     Dates: start: 20060101
  4. MANINIL [Concomitant]
     Indication: DIABETES MELLITUS
     Route: 048
     Dates: start: 19940101
  5. ACTOS [Concomitant]
     Indication: DIABETES MELLITUS
     Route: 048
     Dates: start: 20050101
  6. ASPIRIN [Suspect]
     Indication: THROMBOSIS PROPHYLAXIS
     Route: 048
     Dates: start: 20071001, end: 20081011
  7. VERAPAMIL [Concomitant]
     Indication: ATRIAL FIBRILLATION
     Dates: start: 20080401

REACTIONS (1)
  - VARICOSE VEIN RUPTURED [None]
